FAERS Safety Report 9522963 (Version 1)
Quarter: 2013Q3

REPORT INFORMATION
  Report Type: Report from Study
  Country: US (occurrence: US)
  Receive Date: 20130913
  Receipt Date: 20130913
  Transmission Date: 20140515
  Serious: Yes (Other)
  Sender: FDA-Public Use
  Company Number: US-ROCHE-1273723

PATIENT
  Age: 60 Year
  Sex: Female

DRUGS (20)
  1. LUCENTIS [Suspect]
     Indication: DIABETIC RETINAL OEDEMA
     Route: 050
  2. LUCENTIS [Suspect]
     Indication: DIABETIC RETINOPATHY
  3. AVASTIN [Suspect]
     Indication: PRODUCT USED FOR UNKNOWN INDICATION
     Route: 065
  4. DUREZOL [Concomitant]
     Route: 065
     Dates: start: 20130606, end: 20130606
  5. TIMOLOL [Concomitant]
     Route: 065
     Dates: start: 20130606, end: 20130606
  6. TIMOLOL [Concomitant]
     Route: 065
     Dates: start: 20120601, end: 20120601
  7. COMBIGAN [Concomitant]
     Dosage: 0.2-0.5% AT 7:15 AM
     Route: 065
     Dates: start: 20130606, end: 20130606
  8. POLYTRIM [Concomitant]
     Dosage: 0.1%-10,000 UNITS/ML
     Route: 065
     Dates: start: 20121019, end: 20121019
  9. MYDRIACYL [Concomitant]
     Dosage: ONLY USE 4 DAYS PRIOR TO COMING FOR LASER TX
     Route: 065
     Dates: start: 20120220
  10. AZOPT [Concomitant]
     Route: 065
     Dates: start: 20120220, end: 20120220
  11. DIAMOX SEQUELS [Concomitant]
     Dosage: AT BREAKFAST
     Route: 048
     Dates: start: 20120220, end: 20120220
  12. FLOVENT HFA [Concomitant]
     Dosage: ACTUATION AEROSOL INHALER INHALATION
     Route: 065
  13. GABAPENTIN [Concomitant]
     Route: 048
  14. PROAIR (UNITED STATES) [Concomitant]
     Dosage: ACTUATION AEROSOL INHALER
     Route: 065
     Dates: start: 20110607
  15. METFORMIN [Concomitant]
     Route: 048
     Dates: start: 20110607
  16. PROTONIX (UNITED STATES) [Concomitant]
     Route: 065
     Dates: start: 20110607
  17. LASIX [Concomitant]
     Route: 065
     Dates: start: 20110607
  18. CARVEDILOL [Concomitant]
     Route: 065
     Dates: start: 20110607
  19. VITAMIN C [Concomitant]
     Route: 065
     Dates: start: 20110607
  20. WARFARIN [Concomitant]
     Route: 065
     Dates: start: 20110607

REACTIONS (4)
  - Macular oedema [Unknown]
  - Retinal laser coagulation [Unknown]
  - Optic disc haemorrhage [Unknown]
  - Glaucoma [Unknown]
